FAERS Safety Report 19440030 (Version 2)
Quarter: 2021Q4

REPORT INFORMATION
  Report Type: Report from Study
  Country: CO (occurrence: CO)
  Receive Date: 20210620
  Receipt Date: 20211111
  Transmission Date: 20220303
  Serious: Yes (Other)
  Sender: FDA-Public Use
  Company Number: CO-ABBVIE-20K-036-3677887-00

PATIENT
  Sex: Female
  Weight: 72 kg

DRUGS (5)
  1. HUMIRA [Suspect]
     Active Substance: ADALIMUMAB
     Indication: Rheumatoid arthritis
     Route: 058
     Dates: start: 20151021
  2. HUMIRA [Suspect]
     Active Substance: ADALIMUMAB
     Indication: Rheumatoid arthritis
     Route: 058
     Dates: end: 20210601
  3. HUMIRA [Suspect]
     Active Substance: ADALIMUMAB
     Route: 058
  4. QUETIAPINE [Concomitant]
     Active Substance: QUETIAPINE
     Indication: Sleep disorder therapy
     Route: 048
  5. PREGABALIN [Concomitant]
     Active Substance: PREGABALIN
     Indication: Fibromyalgia
     Route: 048

REACTIONS (15)
  - Radius fracture [Recovered/Resolved]
  - Corrective lens user [Not Recovered/Not Resolved]
  - Inflammation [Not Recovered/Not Resolved]
  - Insomnia [Recovering/Resolving]
  - Migraine [Recovering/Resolving]
  - Fall [Not Recovered/Not Resolved]
  - Muscle spasms [Recovering/Resolving]
  - Tendon pain [Recovering/Resolving]
  - Rheumatoid arthritis [Recovering/Resolving]
  - Muscle mass [Not Recovered/Not Resolved]
  - Stress [Not Recovered/Not Resolved]
  - Influenza [Not Recovered/Not Resolved]
  - Dizziness [Not Recovered/Not Resolved]
  - Insomnia [Not Recovered/Not Resolved]
  - Myalgia [Not Recovered/Not Resolved]

NARRATIVE: CASE EVENT DATE: 20170101
